FAERS Safety Report 5140220-4 (Version None)
Quarter: 2006Q4

REPORT INFORMATION
  Report Type: 
  Country: None (occurrence: None)
  Receive Date: 20061031
  Receipt Date: 20061016
  Transmission Date: 20070319
  Serious: Yes (Death)
  Sender: FDA-Public Use
  Company Number: FR-GLAXOSMITHKLINE-B0442916A

PATIENT
  Age: 72 Year
  Sex: Female

DRUGS (1)
  1. ACETAMINOPHEN [Suspect]
     Route: 048

REACTIONS (2)
  - HEPATITIS [None]
  - JAUNDICE [None]
